FAERS Safety Report 5477899-3 (Version None)
Quarter: 2007Q4

REPORT INFORMATION
  Report Type: 
  Country: None (occurrence: None)
  Receive Date: 20071005
  Receipt Date: 20071002
  Transmission Date: 20080405
  Serious: Yes (Hospitalization)
  Sender: FDA-Public Use
  Company Number: PHNR2007AU01922

PATIENT
  Age: 84 Year

DRUGS (1)
  1. SLOW-K [Suspect]
     Dosage: 1.2 G, 1 TIME
     Route: 048
     Dates: start: 20060419, end: 20060419

REACTIONS (2)
  - LIP SWELLING [None]
  - RASH [None]
